FAERS Safety Report 7835771-5 (Version None)
Quarter: 2011Q4

REPORT INFORMATION
  Report Type: 
  Country: None (occurrence: None)
  Receive Date: 20111024
  Receipt Date: 20111019
  Transmission Date: 20120403
  Serious: Yes (Death)
  Sender: FDA-Public Use
  Company Number: JP-PFIZER INC-2011251078

PATIENT
  Age: 70 Year
  Sex: Male

DRUGS (7)
  1. PREGABALIN [Suspect]
     Dosage: 100 MG, UNK
     Route: 048
     Dates: start: 20110614, end: 20110621
  2. PREGABALIN [Suspect]
     Dosage: 150 MG, UNK
     Route: 048
     Dates: start: 20110709, end: 20110808
  3. PREGABALIN [Suspect]
     Indication: RADICULOPATHY
     Dosage: 25 MG, 1X/DAY
     Route: 048
     Dates: start: 20110523, end: 20110530
  4. REUSAL [Concomitant]
     Indication: PAIN
     Dosage: 20 ML, 1X/DAY
     Route: 042
     Dates: start: 20110621
  5. PREGABALIN [Suspect]
     Dosage: 75 MG, 1X/DAY
     Route: 048
     Dates: start: 20110609, end: 20110613
  6. PREGABALIN [Suspect]
     Dosage: 125 MG, UNK
     Route: 048
     Dates: start: 20110622, end: 20110708
  7. PREGABALIN [Suspect]
     Indication: CAUDA EQUINA SYNDROME
     Dosage: 50 MG, 1X/DAY
     Route: 048
     Dates: start: 20110531, end: 20110608

REACTIONS (1)
  - DEATH [None]
